FAERS Safety Report 12105458 (Version 1)
Quarter: 2016Q1

REPORT INFORMATION
  Report Type: Spontaneous
  Country: US (occurrence: None)
  Receive Date: 20160222
  Receipt Date: 20160222
  Transmission Date: 20160526
  Serious: Yes (Death)
  Sender: FDA-Public Use
  Company Number: None

PATIENT
  Age: 86 Year
  Sex: Male

DRUGS (2)
  1. DONOR STOOL OPENBIOME [Suspect]
     Active Substance: FECAL MICROBIOTA
     Indication: CLOSTRIDIUM DIFFICILE INFECTION
     Dosage: 250 CC  SIGNMOIDIOSCOPY
     Dates: start: 20160121
  2. DONOR STOOL OPEN BIOME [Suspect]
     Active Substance: FECAL MICROBIOTA
     Dosage: 250 CC  ENEMA
     Dates: start: 20160128

REACTIONS (4)
  - Bacterial infection [None]
  - Hypoxia [None]
  - Hypotension [None]
  - Blood culture positive [None]

NARRATIVE: CASE EVENT DATE: 20160204
